FAERS Safety Report 20643147 (Version 1)
Quarter: 2022Q1

REPORT INFORMATION
  Report Type: Spontaneous
  Country: US (occurrence: US)
  Receive Date: 20220328
  Receipt Date: 20220328
  Transmission Date: 20220423
  Serious: Yes (Other)
  Sender: FDA-Public Use
  Company Number: US-APOTEX-2022AP005171

PATIENT
  Age: 6 Year
  Sex: Male

DRUGS (2)
  1. FLUTICASONE [Suspect]
     Active Substance: FLUTICASONE
     Indication: Rhinitis perennial
     Dosage: TWO SPRAYS IN EACH NOSTRIL, BID
     Route: 045
  2. LORATADINE [Concomitant]
     Active Substance: LORATADINE
     Indication: Rhinitis perennial
     Dosage: UNK
     Route: 065

REACTIONS (6)
  - Exophthalmos [Recovering/Resolving]
  - Tic [Recovering/Resolving]
  - Disease progression [Recovering/Resolving]
  - Personality change [Unknown]
  - Flat affect [Recovering/Resolving]
  - Anger [Unknown]
